FAERS Safety Report 22149982 (Version 3)
Quarter: 2023Q2

REPORT INFORMATION
  Report Type: Spontaneous
  Country: AT (occurrence: None)
  Receive Date: 20230329
  Receipt Date: 20230426
  Transmission Date: 20230722
  Serious: Yes (Hospitalization)
  Sender: FDA-Public Use
  Company Number: AT-ROCHE-3317942

PATIENT
  Age: 56 Year
  Sex: Male

DRUGS (3)
  1. ROZLYTREK [Suspect]
     Active Substance: ENTRECTINIB
     Indication: ROS1 gene rearrangement
     Route: 048
     Dates: start: 20230320, end: 20230322
  2. ROZLYTREK [Suspect]
     Active Substance: ENTRECTINIB
     Indication: Bronchial neoplasm
  3. EDOXABAN TOSYLATE [Concomitant]
     Active Substance: EDOXABAN TOSYLATE
     Indication: Deep vein thrombosis
     Route: 048
     Dates: start: 20230317, end: 20230323

REACTIONS (4)
  - Circulatory collapse [Unknown]
  - Arrhythmia [Unknown]
  - Torsade de pointes [Recovered/Resolved]
  - Electrocardiogram abnormal [Unknown]

NARRATIVE: CASE EVENT DATE: 20230322
